FAERS Safety Report 21040327 (Version 1)
Quarter: 2022Q3

REPORT INFORMATION
  Report Type: Other
  Country: US (occurrence: None)
  Receive Date: 20220704
  Receipt Date: 20220704
  Transmission Date: 20221027
  Serious: Yes (Death)
  Sender: FDA-Public Use
  Company Number: US-ROCHE-3128994

PATIENT

DRUGS (4)
  1. OBINUTUZUMAB [Suspect]
     Active Substance: OBINUTUZUMAB
     Indication: Follicular lymphoma
     Dosage: ON DAYS 1, 8, AND 15 OF CYCLE 1, AND DAY 1 OF CYCLES 2-6, AND ON EVERY SECOND CYCLE OF CYCLES 8-30
     Route: 065
  2. PARSACLISIB [Suspect]
     Active Substance: PARSACLISIB
     Indication: Follicular lymphoma
     Route: 065
  3. PARSACLISIB [Suspect]
     Active Substance: PARSACLISIB
     Route: 065
  4. BENDAMUSTINE [Suspect]
     Active Substance: BENDAMUSTINE
     Indication: Follicular lymphoma
     Dosage: ON DAYS 1 AND 2 OF CYCLES 1-6
     Route: 065

REACTIONS (1)
  - COVID-19 pneumonia [Fatal]
